FAERS Safety Report 4822607-X (Version None)
Quarter: 2005Q4

REPORT INFORMATION
  Report Type: 
  Country: None (occurrence: None)
  Receive Date: 20051108
  Receipt Date: 20051028
  Transmission Date: 20060501
  Serious: Yes (Other)
  Sender: FDA-Public Use
  Company Number: PHBS2005JP16034

PATIENT
  Age: 22 Year
  Sex: Female

DRUGS (1)
  1. VOLTAREN [Suspect]
     Indication: PYREXIA
     Dosage: 50 MG/DAY
     Route: 054
     Dates: start: 20050722, end: 20050101

REACTIONS (5)
  - ABDOMINAL PAIN [None]
  - CARDIAC DISORDER [None]
  - CSF PROTEIN INCREASED [None]
  - NUCLEAR MAGNETIC RESONANCE IMAGING BRAIN ABNORMAL [None]
  - OCULOMOTOR STUDY ABNORMAL [None]
